FAERS Safety Report 23771995 (Version 2)
Quarter: 2024Q3

REPORT INFORMATION
  Report Type: Spontaneous
  Country: US (occurrence: US)
  Receive Date: 20240423
  Receipt Date: 20240710
  Transmission Date: 20241016
  Serious: Yes (Hospitalization, Other)
  Sender: VIFOR
  Company Number: US-Vifor (International) Inc.-VIT-2024-03484

PATIENT
  Age: 70 Year
  Sex: Female
  Weight: 82 kg

DRUGS (1)
  1. MIRCERA [Suspect]
     Active Substance: METHOXY POLYETHYLENE GLYCOL-EPOETIN BETA
     Indication: Nephrogenic anaemia
     Dosage: 1ST DOSE MIRCERA, EVERY 2 WEEKS
     Route: 040
     Dates: start: 20240413, end: 20240413

REACTIONS (5)
  - Drug hypersensitivity [Recovered/Resolved]
  - Moaning [Recovered/Resolved]
  - Drooling [Recovered/Resolved]
  - Mental status changes [Recovered/Resolved]
  - Speech disorder [Recovered/Resolved]

NARRATIVE: CASE EVENT DATE: 20240413
